FAERS Safety Report 8537242-X (Version None)
Quarter: 2012Q3

REPORT INFORMATION
  Report Type: 
  Country: None (occurrence: None)
  Receive Date: 20120725
  Receipt Date: 20120716
  Transmission Date: 20120928
  Serious: Yes (Other)
  Sender: FDA-Public Use
  Company Number: US-ASTRAZENECA-2012SE49675

PATIENT
  Age: 85 Year
  Sex: Female

DRUGS (4)
  1. CRESTOR [Suspect]
     Route: 048
     Dates: start: 19840101
  2. VERAPAMIL [Concomitant]
     Indication: CARDIAC DISORDER
  3. LISINOPRIL [Suspect]
     Indication: HYPERTENSION
     Route: 048
  4. ANOTHER MEDICATION [Concomitant]
     Indication: BLOOD DISORDER

REACTIONS (8)
  - WEIGHT DECREASED [None]
  - DIABETES MELLITUS [None]
  - PELVIC FRACTURE [None]
  - CARDIAC MURMUR [None]
  - POLLAKIURIA [None]
  - ADVERSE EVENT [None]
  - FALL [None]
  - UPPER LIMB FRACTURE [None]
